FAERS Safety Report 16568018 (Version 2)
Quarter: 2020Q2

REPORT INFORMATION
  Report Type: Spontaneous
  Country: FR (occurrence: FR)
  Receive Date: 20190712
  Receipt Date: 20200520
  Transmission Date: 20200713
  Serious: Yes (Other)
  Sender: FDA-Public Use
  Company Number: PHHY2019FR159458

PATIENT
  Age: 82 Year
  Sex: Male
  Weight: 97 kg

DRUGS (3)
  1. DOXYCYCLINE. [Suspect]
     Active Substance: DOXYCYCLINE
     Indication: OSTEITIS
     Dosage: 200 MG, QD
     Route: 048
     Dates: end: 20190524
  2. CIPROFLOXACINE [Suspect]
     Active Substance: CIPROFLOXACIN
     Indication: OSTEITIS
     Dosage: 750 MG, QD
     Route: 048
     Dates: end: 20190524
  3. FORTUM [Suspect]
     Active Substance: CEFTAZIDIME
     Indication: OSTEITIS
     Dosage: 6 G, QD
     Route: 042
     Dates: end: 20190524

REACTIONS (1)
  - Acute generalised exanthematous pustulosis [Recovered/Resolved]

NARRATIVE: CASE EVENT DATE: 20190418
